FAERS Safety Report 21290892 (Version 1)
Quarter: 2022Q3

REPORT INFORMATION
  Report Type: Spontaneous
  Country: CN (occurrence: CN)
  Receive Date: 20220903
  Receipt Date: 20220903
  Transmission Date: 20221027
  Serious: Yes (Death, Hospitalization)
  Sender: FDA-Public Use
  Company Number: CN-STRIDES ARCOLAB LIMITED-2022SP011045

PATIENT
  Age: 53 Year
  Sex: Male

DRUGS (22)
  1. DEXAMETHASONE [Suspect]
     Active Substance: DEXAMETHASONE
     Indication: Plasmacytoma
     Dosage: UNK (ONE CYCLE)
     Route: 065
  2. DEXAMETHASONE [Suspect]
     Active Substance: DEXAMETHASONE
     Dosage: UNK (TWO CYCLES IADP REGIMEN)
     Route: 065
  3. DEXAMETHASONE [Suspect]
     Active Substance: DEXAMETHASONE
     Dosage: UNK (FOUR CYCLES OF IADP REGIMEN)
     Route: 065
     Dates: start: 201708
  4. DEXAMETHASONE [Suspect]
     Active Substance: DEXAMETHASONE
     Dosage: 20 MILLIGRAM PER DAY (ON DAY 1-4 AND DAY 9-12; THREE CYCLES; IADP REGIMEN)
     Route: 048
  5. DEXAMETHASONE [Suspect]
     Active Substance: DEXAMETHASONE
     Dosage: 20 MILLIGRAM PER DAY (ON DAY 1-4; ONE CYCLE; GEP REGIMEN)
     Route: 048
  6. DEXAMETHASONE [Suspect]
     Active Substance: DEXAMETHASONE
     Dosage: 20 MILLIGRAM PER DAY (ON DAY 1-4)
     Route: 048
  7. IFOSFAMIDE [Suspect]
     Active Substance: IFOSFAMIDE
     Indication: Plasmacytoma
     Dosage: UNK (TWO CYCLES IADP REGIMEN)
     Route: 065
  8. IFOSFAMIDE [Suspect]
     Active Substance: IFOSFAMIDE
     Dosage: UNK (FOUR CYCLES OF IADP REGIMEN)
     Route: 065
     Dates: start: 201708
  9. IFOSFAMIDE [Suspect]
     Active Substance: IFOSFAMIDE
     Dosage: 2 GRAM ONCE DAILY (DAY 1-3, THREE CYCLES; IADP REGIMEN)
     Route: 042
  10. CISPLATIN [Suspect]
     Active Substance: CISPLATIN
     Indication: Plasmacytoma
     Dosage: UNK (TWO CYCLES IADP REGIMEN
     Route: 065
  11. CISPLATIN [Suspect]
     Active Substance: CISPLATIN
     Dosage: UNK (FOUR CYCLES OF IADP REGIMEN)
     Route: 065
     Dates: start: 201708
  12. CISPLATIN [Suspect]
     Active Substance: CISPLATIN
     Dosage: 20 MILLIGRAM PER DAY (ON DAY 1-4; THREE CYCLES; IADP REGIMEN)
     Route: 042
  13. PIRARUBICIN [Suspect]
     Active Substance: PIRARUBICIN
     Indication: Plasmacytoma
     Dosage: UNK, (ONE CYCLE)
     Route: 065
  14. PIRARUBICIN [Suspect]
     Active Substance: PIRARUBICIN
     Dosage: UNK (TWO CYCLES IADP REGIMEN)
     Route: 065
  15. PIRARUBICIN [Suspect]
     Active Substance: PIRARUBICIN
     Dosage: UNK (FOUR CYCLES OF IADP REGIMEN)
     Route: 065
     Dates: start: 201708
  16. PIRARUBICIN [Suspect]
     Active Substance: PIRARUBICIN
     Dosage: 40 MILLIGRAM PER DAY (THREE CYCLES; IADP REGIMEN ON DAY 1)
     Route: 042
  17. GEMCITABINE [Suspect]
     Active Substance: GEMCITABINE
     Indication: Plasmacytoma
     Dosage: 1.4 GRAM PER DAY (ON DAY 1 AND DAY 8 AND DAY 9-12; ONE CYCLE; GEP REGIMEN)
     Route: 042
  18. ETOPOSIDE [Suspect]
     Active Substance: ETOPOSIDE
     Indication: Plasmacytoma
     Dosage: 0.1 GRAM PER DAY (ON DAY 1-4; ONE CYCLE; GEP REGIMEN)
     Route: 042
  19. LENALIDOMIDE [Suspect]
     Active Substance: LENALIDOMIDE
     Indication: Plasmacytoma
     Dosage: 25 MILLIGRAM PER DAY (ONE CYCLE ON DAY 1-21)
     Route: 042
  20. CYCLOPHOSPHAMIDE [Suspect]
     Active Substance: CYCLOPHOSPHAMIDE
     Indication: Plasmacytoma
     Dosage: UNK (ONE CYCLE)
     Route: 065
  21. CYCLOPHOSPHAMIDE [Suspect]
     Active Substance: CYCLOPHOSPHAMIDE
     Dosage: 0.8 GRAM PER DAY (ON DAY 1)
     Route: 042
  22. THALIDOMIDE [Concomitant]
     Active Substance: THALIDOMIDE
     Indication: Plasmacytoma
     Dosage: UNK (ONE CYCLE)
     Route: 065

REACTIONS (2)
  - Infection [Fatal]
  - Drug ineffective [Unknown]
